FAERS Safety Report 5467932-7 (Version None)
Quarter: 2007Q3

REPORT INFORMATION
  Report Type: 
  Country: None (occurrence: None)
  Receive Date: 20070924
  Receipt Date: 20070924
  Transmission Date: 20080115
  Serious: Yes (Hospitalization)
  Sender: FDA-Public Use
  Company Number: None

PATIENT
  Age: 36 Year
  Sex: Female

DRUGS (7)
  1. TUBERCULIN PURIFIED PROTEIN DERVIATIVE [Suspect]
     Dosage: IN LEFT FOREARM
     Dates: start: 20070730
  2. METHADONE HCL [Concomitant]
  3. ALBUTEROL [Concomitant]
  4. TYLENOL (CAPLET) [Concomitant]
  5. SCOPOLAMINE PATCH [Concomitant]
  6. ZYRTEC [Concomitant]
  7. AMITRIPTYLINE HCL [Concomitant]

REACTIONS (4)
  - HEADACHE [None]
  - NAUSEA [None]
  - PYREXIA [None]
  - VOMITING [None]
